FAERS Safety Report 4323367-1 (Version None)
Quarter: 2004Q1

REPORT INFORMATION
  Report Type: 
  Country: None (occurrence: None)
  Receive Date: 20040325
  Receipt Date: 20040316
  Transmission Date: 20041129
  Serious: Yes (Hospitalization)
  Sender: FDA-Public Use
  Company Number: US-BRISTOL-MYERS SQUIBB COMPANY-12534186

PATIENT
  Age: 74 Year
  Sex: Female

DRUGS (2)
  1. CARBOPLATIN [Suspect]
     Indication: NON-SMALL CELL LUNG CANCER
     Dosage: DOSE = AUC 5  1ST DOSE - 18NOV03
     Route: 042
     Dates: start: 20031216, end: 20031216
  2. GEMZAR [Suspect]
     Indication: NON-SMALL CELL LUNG CANCER
     Dosage: 1ST DOSE- 18NOV03  DOSING ON DAY 1+8
     Route: 042
     Dates: start: 20031216, end: 20031216

REACTIONS (4)
  - ABDOMINAL PAIN [None]
  - ARTHRALGIA [None]
  - BACK PAIN [None]
  - HAEMOGLOBIN DECREASED [None]
